FAERS Safety Report 7315928-2 (Version None)
Quarter: 2011Q1

REPORT INFORMATION
  Report Type: 
  Country: None (occurrence: None)
  Receive Date: 20110225
  Receipt Date: 20110222
  Transmission Date: 20110831
  Serious: Yes (Hospitalization)
  Sender: FDA-Public Use
  Company Number: GB-PERRIGO-11GB001424

PATIENT
  Age: 24 Year
  Sex: Male

DRUGS (14)
  1. PANADOL [Suspect]
     Indication: INTENTIONAL OVERDOSE
     Dosage: 3000 MG, SINGLE
     Route: 048
  2. LACTULOSE [Concomitant]
     Indication: PRODUCT USED FOR UNKNOWN INDICATION
     Dosage: UNK
     Route: 048
  3. CLOZARIL [Suspect]
     Indication: SCHIZOPHRENIA
     Dosage: 250 MG, BID
     Route: 048
     Dates: start: 20100429
  4. MIRTAZAPINE [Suspect]
     Indication: DISSOCIATIVE IDENTITY DISORDER
     Dosage: UNK
     Route: 048
     Dates: start: 20101008, end: 20101008
  5. HYOSCINE HYDROCHLORIDE [Concomitant]
     Indication: PRODUCT USED FOR UNKNOWN INDICATION
     Dosage: UNK
     Route: 048
  6. IBUPROFEN [Suspect]
     Indication: INTENTIONAL OVERDOSE
     Dosage: 2400 MG, SINGLE
     Route: 048
     Dates: start: 20101008, end: 20101008
  7. ALCOHOL [Suspect]
     Indication: INTENTIONAL OVERDOSE
     Dosage: 4 PINTS OF LAGER
     Route: 048
     Dates: start: 20101010, end: 20101010
  8. PARACETAMOL 16028/0012 500 MG [Suspect]
     Indication: INTENTIONAL OVERDOSE
     Dosage: 4000 MG, SINGLE
     Route: 048
     Dates: start: 20101008, end: 20101008
  9. CLOZARIL [Suspect]
     Indication: INTENTIONAL OVERDOSE
     Dosage: 1900 MG, SINGLE
     Route: 048
     Dates: start: 20101008, end: 20101008
  10. NIQUITIN CQ [Concomitant]
     Indication: SMOKING CESSATION THERAPY
     Dosage: UNK
     Route: 062
  11. LITHIUM [Suspect]
     Indication: INTENTIONAL OVERDOSE
     Dosage: UNK
     Route: 048
     Dates: start: 20101008, end: 20101008
  12. PRIADEL [Suspect]
     Indication: PERSONALITY DISORDER
     Dosage: UNK
     Route: 048
  13. PRIADEL [Suspect]
     Indication: INTENTIONAL OVERDOSE
     Dosage: 4800 MG, SINGLE
     Route: 048
     Dates: start: 20101008, end: 20101008
  14. MIRTAZAPINE [Suspect]
     Indication: INTENTIONAL OVERDOSE
     Dosage: 180 MG, SINGLE
     Route: 048

REACTIONS (1)
  - MULTIPLE DRUG OVERDOSE INTENTIONAL [None]
